FAERS Safety Report 9858414 (Version 1)
Quarter: 2014Q1

REPORT INFORMATION
  Report Type: Spontaneous
  Country: US (occurrence: None)
  Receive Date: 20140129
  Receipt Date: 20140129
  Transmission Date: 20141002
  Serious: Yes (Hospitalization)
  Sender: FDA-Public Use
  Company Number: None

PATIENT
  Age: 68 Year
  Sex: Male
  Weight: 80.5 kg

DRUGS (1)
  1. PEMETREXED (ALIMTA; LY231514) [Suspect]

REACTIONS (11)
  - Electrocardiogram QRS complex shortened [None]
  - Ventricular tachycardia [None]
  - Palpitations [None]
  - Tachycardia [None]
  - Dyspnoea exertional [None]
  - Pneumonia [None]
  - Radiation fibrosis - lung [None]
  - Radiation pneumonitis [None]
  - Blood pressure fluctuation [None]
  - Hypoxia [None]
  - Ill-defined disorder [None]
